FAERS Safety Report 4367686-1 (Version None)
Quarter: 2004Q2

REPORT INFORMATION
  Report Type: 
  Country: None (occurrence: None)
  Receive Date: 20040601
  Receipt Date: 20040521
  Transmission Date: 20050107
  Serious: Yes (Disabling)
  Sender: FDA-Public Use
  Company Number: FI-GLAXOSMITHKLINE-B0334085A

PATIENT
  Age: 47 Year
  Sex: Male

DRUGS (4)
  1. ZYBAN [Suspect]
     Indication: EX-SMOKER
     Route: 048
     Dates: start: 20040417, end: 20040501
  2. NICOTINE SUBSTITUTE [Concomitant]
     Indication: EX-SMOKER
  3. BUVENTOL [Concomitant]
     Indication: ASTHMA
     Route: 055
  4. BECLOMET [Concomitant]
     Indication: ASTHMA
     Route: 055

REACTIONS (1)
  - PSORIASIS [None]
